FAERS Safety Report 11503995 (Version 3)
Quarter: 2018Q1

REPORT INFORMATION
  Report Type: Spontaneous
  Country: US (occurrence: US)
  Receive Date: 20150914
  Receipt Date: 20180125
  Transmission Date: 20180508
  Serious: No
  Sender: FDA-Public Use
  Company Number: US-PFIZER INC-2015305000

PATIENT
  Sex: Male

DRUGS (1)
  1. XELJANZ [Suspect]
     Active Substance: TOFACITINIB CITRATE
     Dosage: 5 MG, DAILY
     Dates: start: 2015

REACTIONS (5)
  - Visual impairment [Unknown]
  - Vision blurred [Unknown]
  - Dry eye [Unknown]
  - Intentional product use issue [Unknown]
  - Abdominal pain upper [Unknown]
